FAERS Safety Report 15201874 (Version 1)
Quarter: 2018Q3

REPORT INFORMATION
  Report Type: Spontaneous
  Country: JP (occurrence: JP)
  Receive Date: 20180726
  Receipt Date: 20180726
  Transmission Date: 20181010
  Serious: Yes (Death)
  Sender: FDA-Public Use
  Company Number: JP-CELGENEUS-JPN-20180708272

PATIENT
  Age: 80 Year
  Sex: Male

DRUGS (1)
  1. REVLIMID [Suspect]
     Active Substance: LENALIDOMIDE
     Indication: ADULT T-CELL LYMPHOMA/LEUKAEMIA
     Dosage: 5 MILLIGRAM
     Route: 048
     Dates: start: 20171116, end: 20180723

REACTIONS (1)
  - Adult T-cell lymphoma/leukaemia [Fatal]

NARRATIVE: CASE EVENT DATE: 20180723
